FAERS Safety Report 20547097 (Version 1)
Quarter: 2022Q1

REPORT INFORMATION
  Report Type: Spontaneous
  Country: US (occurrence: US)
  Receive Date: 20220303
  Receipt Date: 20220303
  Transmission Date: 20220423
  Serious: No
  Sender: FDA-Public Use
  Company Number: US-ELI_LILLY_AND_COMPANY-US202202000965

PATIENT
  Sex: Female

DRUGS (1)
  1. HUMALOG JUNIOR KWIKPEN [Suspect]
     Active Substance: INSULIN LISPRO
     Indication: Type 1 diabetes mellitus
     Dosage: 30 U, PRN (MAX 20-30 UNITS A DAY)
     Route: 058

REACTIONS (3)
  - Blood glucose increased [Unknown]
  - Underdose [Unknown]
  - Product dose omission issue [Unknown]
